FAERS Safety Report 10017530 (Version 1)
Quarter: 2014Q1

REPORT INFORMATION
  Report Type: Spontaneous
  Country: US (occurrence: None)
  Receive Date: 20140313
  Receipt Date: 20140313
  Transmission Date: 20141002
  Serious: Yes (Hospitalization, Other)
  Sender: FDA-Public Use
  Company Number: None

PATIENT
  Age: 48 Year
  Sex: Female
  Weight: 83.14 kg

DRUGS (11)
  1. GLIPIZIDE XL [Suspect]
     Indication: TYPE 2 DIABETES MELLITUS
     Route: 048
     Dates: end: 20140302
  2. LOSARTAN POTASSIUM [Concomitant]
  3. SIMVASTATIN [Concomitant]
  4. CLONAZEPAM [Concomitant]
  5. ABILIFY (ARIPIPRAZOLE) [Concomitant]
  6. JANUVIA (SITAGLIPTIN PHOSPHATE) [Concomitant]
  7. FAMILY WELLNESS BRAND ANTIHISTAMINE (GENERIC BENADRYL) [Concomitant]
  8. PRO-AIR HFA [Concomitant]
  9. ADVAIR YELLOW DISKUS [Concomitant]
  10. CLOTRIMAZOLE BETATHIOSENE CREAM (ANTIFUNGAL) [Concomitant]
  11. TING BRAND ANTIFUNGAL SPRAY [Concomitant]

REACTIONS (12)
  - Stress [None]
  - Blood glucose increased [None]
  - Fluid retention [None]
  - Muscle tightness [None]
  - Dry throat [None]
  - Pain [None]
  - Constipation [None]
  - Sluggishness [None]
  - Dyspnoea [None]
  - Speech disorder [None]
  - Pollakiuria [None]
  - Drug ineffective [None]
